FAERS Safety Report 6389167-6 (Version None)
Quarter: 2009Q4

REPORT INFORMATION
  Report Type: 
  Country: None (occurrence: None)
  Receive Date: 20091006
  Receipt Date: 20090924
  Transmission Date: 20100525
  Serious: Yes (Other)
  Sender: FDA-Public Use
  Company Number: US-JNJFOC-20090907480

PATIENT
  Sex: Female
  Weight: 64.41 kg

DRUGS (6)
  1. SIMPONI [Suspect]
     Indication: ANKYLOSING SPONDYLITIS
     Dosage: END DATE 6TH OR 7TH OF AUG-2009
     Route: 058
     Dates: start: 20090518, end: 20090801
  2. LEVOXYL [Concomitant]
  3. DARVOCET [Concomitant]
     Indication: PAIN
  4. METOPROLOL [Concomitant]
     Indication: HEART RATE
  5. VITAMIN D [Concomitant]
  6. LORAZEPAM [Concomitant]
     Indication: SLEEP DISORDER

REACTIONS (10)
  - ANEURYSM [None]
  - DIARRHOEA [None]
  - ELECTROCARDIOGRAM ABNORMAL [None]
  - GINGIVAL INFECTION [None]
  - HEART RATE DECREASED [None]
  - HEART RATE INCREASED [None]
  - HYPOTENSION [None]
  - POST PROCEDURAL COMPLICATION [None]
  - THERAPEUTIC RESPONSE DECREASED [None]
  - TREMOR [None]
